FAERS Safety Report 10787543 (Version 2)
Quarter: 2015Q1

REPORT INFORMATION
  Report Type: Report from Study
  Country: FR (occurrence: FR)
  Receive Date: 20150212
  Receipt Date: 20150310
  Transmission Date: 20150721
  Serious: Yes (Hospitalization)
  Sender: FDA-Public Use
  Company Number: FR-MERCK-1502FRA002463

PATIENT
  Age: 70 Year
  Sex: Male

DRUGS (1)
  1. TEMOZOLOMIDE. [Suspect]
     Active Substance: TEMOZOLOMIDE
     Indication: GLIOMA
     Dosage: SCHEDULE AS CURRENT (75MG/M^2/DAY) AND ADJUVANT (150-200 MG/M^2/DAY, DAY 1-5 (EVERY 28 DAYS))

REACTIONS (1)
  - Brain abscess [Unknown]

NARRATIVE: CASE EVENT DATE: 20141213
